FAERS Safety Report 17383554 (Version 2)
Quarter: 2020Q1

REPORT INFORMATION
  Report Type: Report from Study
  Country: US (occurrence: US)
  Receive Date: 20200206
  Receipt Date: 20200227
  Transmission Date: 20200409
  Serious: Yes (Hospitalization)
  Sender: FDA-Public Use
  Company Number: US-JNJFOC-20200200175

PATIENT
  Sex: Male

DRUGS (1)
  1. STELARA [Suspect]
     Active Substance: USTEKINUMAB
     Indication: PRODUCT USED FOR UNKNOWN INDICATION
     Route: 058
     Dates: end: 201910

REACTIONS (8)
  - Cough [Unknown]
  - Fibromuscular dysplasia [Unknown]
  - Wheezing [Unknown]
  - Nervous system disorder [Unknown]
  - Chest discomfort [Unknown]
  - Drug ineffective [Unknown]
  - Headache [Unknown]
  - Sinus disorder [Unknown]

NARRATIVE: CASE EVENT DATE: 202001
